FAERS Safety Report 7278709-4 (Version None)
Quarter: 2011Q1

REPORT INFORMATION
  Report Type: 
  Country: None (occurrence: None)
  Receive Date: 20110207
  Receipt Date: 20110125
  Transmission Date: 20110831
  Serious: Yes (Other)
  Sender: FDA-Public Use
  Company Number: PHHY2011TR06893

PATIENT
  Age: 44 Year
  Sex: Female

DRUGS (2)
  1. CISPLATIN [Suspect]
     Indication: PANCREATIC CARCINOMA
  2. FLUOROURACIL [Suspect]
     Indication: PANCREATIC CARCINOMA

REACTIONS (3)
  - DRUG EXPOSURE DURING PREGNANCY [None]
  - PREMATURE LABOUR [None]
  - NEPHROPATHY TOXIC [None]
